FAERS Safety Report 18326808 (Version 1)
Quarter: 2020Q3

REPORT INFORMATION
  Report Type: Spontaneous
  Country: GB (occurrence: GB)
  Receive Date: 20200930
  Receipt Date: 20200930
  Transmission Date: 20201103
  Serious: Yes (Disabling)
  Sender: FDA-Public Use
  Company Number: GB-DEXPHARM-20200844

PATIENT
  Age: 58 Year
  Sex: Male
  Weight: 85 kg

DRUGS (13)
  1. AMLODIPINE [Concomitant]
     Active Substance: AMLODIPINE BESYLATE
     Dates: start: 20200128
  2. VISCOTEARS [Concomitant]
     Active Substance: CARBOMER
     Dosage: 1?2 DROPS 4 TIMES/DAY
     Dates: start: 20200128
  3. FLUTICASONE FUROATE [Concomitant]
     Active Substance: FLUTICASONE FUROATE
     Dosage: 1?2 DROPS 4 TIMES/DAY
     Route: 045
     Dates: start: 20200128
  4. LOSARTAN. [Concomitant]
     Active Substance: LOSARTAN
     Dates: start: 20200128
  5. ACETYLSALICYLIC ACID [Concomitant]
     Active Substance: ASPIRIN
     Dosage: 1?2 DROPS 4 TIMES/DAY
     Dates: start: 20200128
  6. ATORVASTATIN [Concomitant]
     Active Substance: ATORVASTATIN
     Dosage: 1?2 DROPS 4 TIMES/DAY
     Dates: start: 20200128
  7. MIRTAZAPINE. [Concomitant]
     Active Substance: MIRTAZAPINE
     Dates: start: 20200128
  8. IBUPROFEN. [Concomitant]
     Active Substance: IBUPROFEN
     Dosage: 1?2 DROPS 4 TIMES/DAY
     Dates: start: 20200128
  9. SODIUM CROMOGLICATE [Concomitant]
     Active Substance: CROMOLYN SODIUM
     Dosage: 1?2 DROPS 4 TIMES/DAY
     Dates: start: 20200324
  10. ISOSORBIDE MONONITRATE. [Suspect]
     Active Substance: ISOSORBIDE MONONITRATE
     Route: 048
     Dates: start: 20190401
  11. LANSOPRAZOLE. [Concomitant]
     Active Substance: LANSOPRAZOLE
     Dates: start: 20200128
  12. BISOPROLOL [Concomitant]
     Active Substance: BISOPROLOL
     Dates: start: 20200128
  13. PARACETAMOL [Concomitant]
     Active Substance: ACETAMINOPHEN
     Dates: start: 20200723, end: 20200820

REACTIONS (1)
  - Urticaria [Recovered/Resolved]

NARRATIVE: CASE EVENT DATE: 20190401
